FAERS Safety Report 17952928 (Version 1)
Quarter: 2020Q2

REPORT INFORMATION
  Report Type: Spontaneous
  Country: CA (occurrence: CA)
  Receive Date: 20200627
  Receipt Date: 20200627
  Transmission Date: 20200714
  Serious: Yes (Death, Disabling)
  Sender: FDA-Public Use
  Company Number: CA-ACCORD-187142

PATIENT
  Age: 84 Year
  Sex: Female

DRUGS (3)
  1. MYCOPHENOLIC ACID. [Suspect]
     Active Substance: MYCOPHENOLIC ACID
     Indication: MALIGNANT MELANOMA
  2. PREDNISONE. [Suspect]
     Active Substance: PREDNISONE
     Indication: MALIGNANT MELANOMA
     Route: 042
  3. INFLIXIMAB [Suspect]
     Active Substance: INFLIXIMAB
     Indication: MALIGNANT MELANOMA
     Route: 042

REACTIONS (3)
  - Myocarditis [Fatal]
  - Fatigue [Fatal]
  - Drug ineffective for unapproved indication [Fatal]
